FAERS Safety Report 10836027 (Version 1)
Quarter: 2015Q1

REPORT INFORMATION
  Report Type: Spontaneous
  Country: US (occurrence: US)
  Receive Date: 20150219
  Receipt Date: 20150219
  Transmission Date: 20150721
  Serious: Yes (Other)
  Sender: FDA-Public Use
  Company Number: US-CIPLA LTD.-2015US01134

PATIENT

DRUGS (3)
  1. LOPINAVIR/RITONAVIR [Suspect]
     Active Substance: LOPINAVIR\RITONAVIR
     Indication: HIV ANTIBODY POSITIVE
     Dosage: 400/100 MG TWICE DAILY FOR 14 DAYS NOT POSTPARTUM
  2. LOPINAVIR/RITONAVIR [Suspect]
     Active Substance: LOPINAVIR\RITONAVIR
     Dosage: 400/100 MG TWICE DAILY FOR 30 DAYS IF POSTPARTUM
  3. DEPOT MEDROXYPROGESTERONE ACETATE [Suspect]
     Active Substance: MEDROXYPROGESTERONE ACETATE
     Indication: CONTRACEPTION
     Dosage: 150 MG SINGLE DOSE
     Route: 030

REACTIONS (2)
  - Blood HIV RNA increased [Unknown]
  - Drug interaction [Unknown]
